FAERS Safety Report 9995403 (Version 1)
Quarter: 2014Q1

REPORT INFORMATION
  Report Type: Spontaneous
  Country: JP (occurrence: JP)
  Receive Date: 20140311
  Receipt Date: 20140311
  Transmission Date: 20141002
  Serious: Yes (Hospitalization)
  Sender: FDA-Public Use
  Company Number: JP-KOWA-2014S1000262

PATIENT
  Age: 64 Year
  Sex: Male
  Weight: 88 kg

DRUGS (11)
  1. LIVALO [Suspect]
     Indication: TYPE 2 DIABETES MELLITUS
  2. ALOGLIPTIN [Suspect]
     Indication: TYPE 2 DIABETES MELLITUS
     Route: 048
     Dates: start: 20121124
  3. PIOGLITAZONE HYDROCHLORIDE [Suspect]
     Indication: TYPE 2 DIABETES MELLITUS
     Route: 048
  4. GLIMEPIRIDE [Concomitant]
     Dates: end: 20131017
  5. CARDENALIN [Concomitant]
  6. FEBURIC [Concomitant]
  7. NIFEDIPINE [Concomitant]
  8. OLMETEC [Concomitant]
     Dates: end: 20130801
  9. EPALRESTAT [Concomitant]
     Dates: end: 20131017
  10. RABEPRAZOLE SODIUM [Concomitant]
     Dates: start: 20130520
  11. NITROPEN [Concomitant]
     Dates: start: 20130801

REACTIONS (1)
  - Hyperkalaemia [Unknown]
